FAERS Safety Report 5481981-4 (Version None)
Quarter: 2007Q4

REPORT INFORMATION
  Report Type: 
  Country: None (occurrence: None)
  Receive Date: 20071005
  Receipt Date: 20070925
  Transmission Date: 20080405
  Serious: Yes (Hospitalization)
  Sender: FDA-Public Use
  Company Number: 2006US000554

PATIENT
  Age: 60 Year
  Sex: Male

DRUGS (29)
  1. PROGRAF [Suspect]
     Indication: PROPHYLAXIS AGAINST TRANSPLANT REJECTION
     Dosage: 5 MG, BID, , ORAL
     Route: 048
     Dates: start: 20041106
  2. MYCOPHENOLATE MOFETIL [Suspect]
     Indication: PROPHYLAXIS AGAINST TRANSPLANT REJECTION
     Dosage: 500 MG, BID, ORAL
     Route: 048
     Dates: start: 20041103
  3. PREDNISONE TAB [Suspect]
     Indication: PROPHYLAXIS AGAINST TRANSPLANT REJECTION
     Dosage: 20 MG, UID/QD, ORAL
     Route: 048
     Dates: start: 20041103
  4. SIMULECT [Suspect]
     Indication: DRUG USE FOR UNKNOWN INDICATION
     Dosage: 20 UNK, UID/QD, IV NOS
     Route: 042
     Dates: start: 20041103, end: 20041106
  5. NYSTATIN [Concomitant]
  6. GLUCOTROL [Concomitant]
  7. BACTRIM SULFATE (SULFAMETHOXAZOLE, TRIMETHOPRIM) [Concomitant]
  8. VALCYTE [Concomitant]
  9. CEFOXITIN (CEFOXITIN) [Concomitant]
  10. NEPHRO-VITE RX (ASCORBIC ACID, VITAMIN B NOS, FOLIC ACID) [Concomitant]
  11. FLUCONAZOLE [Concomitant]
  12. INSULIN, REGULAR (INSULIN) [Concomitant]
  13. LEVAQUIN [Concomitant]
  14. AMPICILLIN [Concomitant]
  15. HEPARIN [Concomitant]
  16. METOPROLOL TARTRATE [Concomitant]
  17. INSULIN SUSPENSION, NPH (INSULIN INJECTION, ISOPHANE) [Concomitant]
  18. AVANDIA [Concomitant]
  19. ZOSYN [Concomitant]
  20. PRIMAXIN [Concomitant]
  21. NIFEDIPINE [Concomitant]
  22. FLAGYL [Concomitant]
  23. COUMADIN [Concomitant]
  24. PROTONIX [Concomitant]
  25. MIRALAX [Concomitant]
  26. BISCO-LAX (BISCODYL) [Concomitant]
  27. TRAZODONE (TRAZODONE HYDROCHLORIDE) [Concomitant]
  28. POLYETHYLENE GLYCOL W/PROPYLENE GLYCOL (PROPYLENE GLYCOL, MACROGOL) [Concomitant]
  29. KAYEXALATE [Concomitant]

REACTIONS (9)
  - ATRIAL FIBRILLATION [None]
  - COMPLICATIONS OF TRANSPLANTED KIDNEY [None]
  - HAEMATURIA [None]
  - HYPERTENSIVE CRISIS [None]
  - OLIGURIA [None]
  - PYELONEPHRITIS [None]
  - SEPSIS [None]
  - URINARY INCONTINENCE [None]
  - UROSTOMY COMPLICATION [None]
